FAERS Safety Report 8482892-2 (Version None)
Quarter: 2012Q2

REPORT INFORMATION
  Report Type: 
  Country: None (occurrence: None)
  Receive Date: 20120625
  Receipt Date: 20120619
  Transmission Date: 20120825
  Serious: Yes (Disabling, Other)
  Sender: FDA-Public Use
  Company Number: 2012MA007635

PATIENT
  Age: 35 Year
  Sex: Male

DRUGS (3)
  1. MEPERIDINE HCL [Concomitant]
  2. RANITIDINE [Concomitant]
  3. TRAMADOL HYDROCHLORIDE [Suspect]
     Indication: ABDOMINAL PAIN
     Dosage: 100 MG;TID;PO
     Route: 048
     Dates: start: 20111117, end: 20120521

REACTIONS (3)
  - DYSKINESIA [None]
  - SLEEP DISORDER [None]
  - LOSS OF EMPLOYMENT [None]
